FAERS Safety Report 10135734 (Version 1)
Quarter: 2014Q2

REPORT INFORMATION
  Report Type: Report from Study
  Country: TH (occurrence: TH)
  Receive Date: 20140428
  Receipt Date: 20140428
  Transmission Date: 20141212
  Serious: Yes (Death, Other)
  Sender: FDA-Public Use
  Company Number: PHHY2014TH051136

PATIENT
  Age: 70 Year
  Sex: Female
  Weight: 46.8 kg

DRUGS (2)
  1. GLIVEC [Suspect]
     Indication: CHRONIC MYELOID LEUKAEMIA
     Dosage: 400 MG, QD
     Route: 048
     Dates: start: 20120910, end: 20121224
  2. GLIVEC [Suspect]
     Dosage: 300 MG, QD
     Route: 048
     Dates: start: 20130121, end: 20130304

REACTIONS (4)
  - Bone marrow failure [Fatal]
  - Pancytopenia [Fatal]
  - White blood cell count decreased [Fatal]
  - Platelet count decreased [Fatal]
